FAERS Safety Report 6754256-0 (Version None)
Quarter: 2010Q2

REPORT INFORMATION
  Report Type: 
  Country: None (occurrence: None)
  Receive Date: 20100603
  Receipt Date: 20100524
  Transmission Date: 20101027
  Serious: Yes (Hospitalization)
  Sender: FDA-Public Use
  Company Number: US-MERCK-1005USA04341

PATIENT
  Age: 89 Year
  Sex: Female

DRUGS (7)
  1. FOSAMAX [Suspect]
     Route: 048
  2. ACETAMINOPHEN [Concomitant]
     Route: 065
  3. FOSAMAX [Suspect]
     Route: 048
  4. CALCIUM CITRATE [Concomitant]
     Route: 065
  5. PLAVIX [Concomitant]
     Route: 065
  6. PANCREATIN [Concomitant]
     Route: 065
  7. VITAMIN D (UNSPECIFIED) [Concomitant]
     Route: 065

REACTIONS (3)
  - OSTEOPENIA [None]
  - OSTEOPOROSIS [None]
  - SPINAL COMPRESSION FRACTURE [None]
